FAERS Safety Report 7369387-4 (Version None)
Quarter: 2011Q1

REPORT INFORMATION
  Report Type: 
  Country: None (occurrence: None)
  Receive Date: 20110314
  Receipt Date: 20110225
  Transmission Date: 20110831
  Serious: Yes (Hospitalization)
  Sender: FDA-Public Use
  Company Number: 2011MA001863

PATIENT
  Age: 24 Year
  Sex: Female

DRUGS (6)
  1. LITHIUM CARBONATE [Concomitant]
  2. SERTRALINE HYDROCHLORIDE [Concomitant]
  3. VENLAFAXINE HYDROCHLORIDE [Suspect]
     Indication: DEPRESSION
     Dosage: 225 MG;
  4. MIRTAZAPINE [Concomitant]
  5. CARBAMAZEPINE [Concomitant]
  6. DIAZEPAM [Concomitant]

REACTIONS (3)
  - PSYCHOMOTOR HYPERACTIVITY [None]
  - STRESS [None]
  - PARAESTHESIA [None]
